FAERS Safety Report 11555550 (Version 1)
Quarter: 2015Q3

REPORT INFORMATION
  Report Type: Spontaneous
  Country: US (occurrence: US)
  Receive Date: 20150903
  Receipt Date: 20150903
  Transmission Date: 20151125
  Serious: No
  Sender: FDA-Public Use
  Company Number: US-ELI_LILLY_AND_COMPANY-US201011000879

PATIENT
  Age: 58 Year
  Sex: Female

DRUGS (8)
  1. SIMVASTATIN. [Concomitant]
     Active Substance: SIMVASTATIN
  2. HUMALOG MIX75/25 [Suspect]
     Active Substance: INSULIN LISPRO
     Dosage: 12 U, EACH EVENING
     Dates: start: 2008
  3. CLONIDINE. [Concomitant]
     Active Substance: CLONIDINE
  4. LANTUS [Concomitant]
     Active Substance: INSULIN GLARGINE
  5. AMLODIPINE [Concomitant]
     Active Substance: AMLODIPINE BESYLATE
  6. LOSARTAN. [Concomitant]
     Active Substance: LOSARTAN
  7. ATENOLOL. [Concomitant]
     Active Substance: ATENOLOL
  8. HUMALOG MIX75/25 [Suspect]
     Active Substance: INSULIN LISPRO
     Indication: TYPE 2 DIABETES MELLITUS
     Dosage: 19 U, EACH MORNING
     Dates: start: 2008

REACTIONS (5)
  - Poor quality drug administered [Unknown]
  - Menorrhagia [Unknown]
  - Burning sensation [Unknown]
  - Hypersensitivity [Unknown]
  - Generalised erythema [Unknown]

NARRATIVE: CASE EVENT DATE: 20101012
